FAERS Safety Report 7470390-4 (Version None)
Quarter: 2011Q2

REPORT INFORMATION
  Report Type: 
  Country: None (occurrence: None)
  Receive Date: 20110510
  Receipt Date: 20110506
  Transmission Date: 20111010
  Serious: Yes (Life-Threatening, Hospitalization)
  Sender: FDA-Public Use
  Company Number: FR-ASTRAZENECA-2011SE26726

PATIENT
  Age: 19233 Day
  Sex: Female

DRUGS (5)
  1. GELUPRANE [Suspect]
     Indication: PAIN
     Route: 048
  2. NEXIUM [Suspect]
     Indication: GASTROOESOPHAGEAL REFLUX DISEASE
     Route: 048
  3. CELOCURINE [Suspect]
     Indication: MUSCLE RELAXANT THERAPY
     Route: 042
     Dates: start: 20100921
  4. DIPRIVAN [Suspect]
     Indication: ANAESTHESIA
     Route: 042
     Dates: start: 20100921
  5. LEVOTHYROXINE SODIUM [Interacting]
     Indication: HYPOTHYROIDISM
     Route: 048

REACTIONS (1)
  - ANAPHYLACTIC SHOCK [None]
